FAERS Safety Report 8439961-2 (Version None)
Quarter: 2012Q2

REPORT INFORMATION
  Report Type: 
  Country: None (occurrence: None)
  Receive Date: 20120608
  Receipt Date: 20120531
  Transmission Date: 20120825
  Serious: Yes (Death)
  Sender: FDA-Public Use
  Company Number: 1305005

PATIENT
  Age: 56 Year
  Sex: Male

DRUGS (2)
  1. OXALIPLATIN [Suspect]
     Indication: COLON CANCER METASTATIC
     Dosage: 240 MG THRICE WEEKLY, INTRAVENOUS (NOT OTHERWISE SPECIFIED)
     Route: 042
  2. CAPECITABINE [Suspect]
     Indication: COLON CANCER METASTATIC
     Dosage: 1500 MG B.I.D., ORAL, 1500 MG MILLIGRAM(S), ORAL
     Route: 048

REACTIONS (17)
  - ABDOMINAL PAIN [None]
  - POSTERIOR REVERSIBLE ENCEPHALOPATHY SYNDROME [None]
  - BLOOD ALKALINE PHOSPHATASE INCREASED [None]
  - STATUS EPILEPTICUS [None]
  - DECREASED APPETITE [None]
  - HYPERTENSION [None]
  - GRAND MAL CONVULSION [None]
  - ASPARTATE AMINOTRANSFERASE INCREASED [None]
  - RENAL IMPAIRMENT [None]
  - LIVER FUNCTION TEST ABNORMAL [None]
  - WEIGHT DECREASED [None]
  - ALANINE AMINOTRANSFERASE INCREASED [None]
  - GAMMA-GLUTAMYLTRANSFERASE INCREASED [None]
  - BLOOD CREATININE INCREASED [None]
  - NODULE [None]
  - ENCEPHALOPATHY [None]
  - BRAIN OEDEMA [None]
